FAERS Safety Report 7618518-7 (Version None)
Quarter: 2011Q3

REPORT INFORMATION
  Report Type: 
  Country: None (occurrence: None)
  Receive Date: 20110718
  Receipt Date: 20091120
  Transmission Date: 20111222
  Serious: Yes (Disabling, Other)
  Sender: FDA-Public Use
  Company Number: US-BAYER-200940929NA

PATIENT
  Age: 44 Year
  Sex: Female

DRUGS (16)
  1. PAVULON [Concomitant]
     Dosage: UNK
     Route: 042
     Dates: start: 19970721, end: 19970721
  2. FENTANYL-100 [Concomitant]
     Dosage: UNK
     Route: 042
     Dates: start: 19970721, end: 19970721
  3. TRASYLOL [Suspect]
     Indication: CORONARY ARTERY BYPASS
  4. HEPARIN [Concomitant]
     Dosage: UNK
     Route: 042
     Dates: start: 19970721, end: 19970721
  5. TRASYLOL [Suspect]
     Indication: AORTIC VALVE REPLACEMENT
     Dosage: 200 CC PUMP PRIME
     Route: 042
     Dates: start: 19970721, end: 19970721
  6. NITROGLYCERIN [Concomitant]
     Dosage: UNK
     Route: 042
     Dates: start: 19970721, end: 19970721
  7. NORVASC [Concomitant]
  8. VERSED [Concomitant]
     Dosage: UNK
     Route: 042
     Dates: start: 19970721, end: 19970721
  9. AMIDATE [Concomitant]
     Dosage: UNK
     Route: 042
     Dates: start: 19970721, end: 19970721
  10. PHENYLEPHRINE HCL [Concomitant]
     Dosage: UNK
     Route: 042
     Dates: start: 19970721, end: 19970721
  11. RED BLOOD CELLS [Concomitant]
     Dosage: 2 U, UNK
     Route: 042
     Dates: start: 19970721
  12. PREMARIN [Concomitant]
  13. COUMADIN [Concomitant]
  14. HESPAN IN EXCEL PLASTIC CONTAINER [Concomitant]
     Dosage: UNK
     Route: 042
     Dates: start: 19970721, end: 19970721
  15. LASIX [Concomitant]
     Dosage: 20 MG, UNK
     Route: 042
     Dates: start: 19970721, end: 19970721
  16. PLATELETS [Concomitant]
     Dosage: 20 U, UNK
     Route: 042
     Dates: start: 19970721

REACTIONS (12)
  - DISABILITY [None]
  - PAIN [None]
  - INJURY [None]
  - UNEVALUABLE EVENT [None]
  - RENAL FAILURE [None]
  - ANHEDONIA [None]
  - FEAR [None]
  - MULTI-ORGAN FAILURE [None]
  - DEPRESSION [None]
  - PSYCHIATRIC SYMPTOM [None]
  - RENAL INJURY [None]
  - ANXIETY [None]
